FAERS Safety Report 13628866 (Version 1)
Quarter: 2017Q2

REPORT INFORMATION
  Report Type: Report from Study
  Country: RU (occurrence: RU)
  Receive Date: 20170608
  Receipt Date: 20170608
  Transmission Date: 20170830
  Serious: Yes (Other)
  Sender: FDA-Public Use
  Company Number: RU-JNJFOC-20170604238

PATIENT

DRUGS (7)
  1. DELAMANID [Suspect]
     Active Substance: DELAMANID
     Indication: TUBERCULOSIS
     Route: 065
  2. CLOFAZIMINE [Suspect]
     Active Substance: CLOFAZIMINE
     Indication: TUBERCULOSIS
     Route: 065
  3. SIRTURO [Suspect]
     Active Substance: BEDAQUILINE FUMARATE
     Indication: TUBERCULOSIS
     Dosage: FOR 14 DAYS
     Route: 048
  4. MOXIFLOXACIN. [Suspect]
     Active Substance: MOXIFLOXACIN
     Indication: TUBERCULOSIS
     Route: 065
  5. OFLOXACIN. [Suspect]
     Active Substance: OFLOXACIN
     Indication: TUBERCULOSIS
     Route: 065
  6. SIRTURO [Suspect]
     Active Substance: BEDAQUILINE FUMARATE
     Indication: TUBERCULOSIS
     Dosage: FOR 22 WEEKS
     Route: 048
  7. LINEZOLID. [Suspect]
     Active Substance: LINEZOLID
     Indication: TUBERCULOSIS
     Route: 065

REACTIONS (29)
  - Blood magnesium decreased [Unknown]
  - Blood potassium abnormal [Unknown]
  - Neutropenia [Unknown]
  - Arthralgia [Unknown]
  - Hallucination [Unknown]
  - Blood creatinine increased [Unknown]
  - Rash [Unknown]
  - Mental disorder [Unknown]
  - Lipase increased [Unknown]
  - Ototoxicity [Unknown]
  - Deep vein thrombosis [Unknown]
  - Diarrhoea [Unknown]
  - Tendon disorder [Unknown]
  - Blood calcium decreased [Unknown]
  - Optic neuropathy [Unknown]
  - Anaemia [Unknown]
  - Thrombocytopenia [Unknown]
  - Electrocardiogram QT prolonged [Unknown]
  - Pancreatitis [Unknown]
  - Vomiting [Unknown]
  - Lymphopenia [Unknown]
  - Blood albumin abnormal [Unknown]
  - Renal failure [Unknown]
  - Cerebrovascular accident [Unknown]
  - Hypothyroidism [Unknown]
  - Nausea [Unknown]
  - Neuropathy peripheral [Unknown]
  - Alanine aminotransferase increased [Unknown]
  - Blood bilirubin increased [Unknown]
